FAERS Safety Report 17954725 (Version 1)
Quarter: 2020Q2

REPORT INFORMATION
  Report Type: Spontaneous
  Country: RO (occurrence: RO)
  Receive Date: 20200629
  Receipt Date: 20200629
  Transmission Date: 20200714
  Serious: Yes (Other)
  Sender: FDA-Public Use
  Company Number: RO-ASTRAZENECA-2020SE58214

PATIENT
  Age: 59 Year
  Sex: Female
  Weight: 103 kg

DRUGS (3)
  1. GLUCOPHAGE XR [Concomitant]
     Active Substance: METFORMIN HYDROCHLORIDE
     Route: 065
     Dates: start: 201704
  2. BYDUREON [Concomitant]
     Active Substance: EXENATIDE
     Route: 065
     Dates: start: 201704
  3. BYDUREON BCISE [Suspect]
     Active Substance: EXENATIDE
     Route: 065
     Dates: start: 202001

REACTIONS (4)
  - Product dose omission [Unknown]
  - Incorrect dose administered [Unknown]
  - Device occlusion [Unknown]
  - Glycosylated haemoglobin increased [Not Recovered/Not Resolved]
